FAERS Safety Report 5407163-X (Version None)
Quarter: 2007Q3

REPORT INFORMATION
  Report Type: 
  Country: None (occurrence: None)
  Receive Date: 20070807
  Receipt Date: 20070726
  Transmission Date: 20080115
  Serious: Yes (Other)
  Sender: FDA-Public Use
  Company Number: US-BRACCO-BDI-009845

PATIENT
  Age: 51 Year
  Sex: Female

DRUGS (2)
  1. ISOVUE-128 [Suspect]
     Dosage: 2 ML/SEC
     Route: 042
     Dates: start: 20070707, end: 20070707
  2. SODIUM CHLORIDE 0.9% [Concomitant]
     Route: 042
     Dates: start: 20070707, end: 20070707

REACTIONS (9)
  - BLISTER [None]
  - EXTRAVASATION [None]
  - INJECTION SITE PAIN [None]
  - INJECTION SITE SWELLING [None]
  - NECK PAIN [None]
  - OEDEMA PERIPHERAL [None]
  - PHARYNGOLARYNGEAL PAIN [None]
  - SKIN DISCOLOURATION [None]
  - VOMITING [None]
